FAERS Safety Report 8385061-X (Version None)
Quarter: 2012Q2

REPORT INFORMATION
  Report Type: 
  Country: None (occurrence: None)
  Receive Date: 20120524
  Receipt Date: 20120521
  Transmission Date: 20120825
  Serious: Yes (Hospitalization)
  Sender: FDA-Public Use
  Company Number: FR-MERCK-1011FRA00003

PATIENT
  Age: 82 Year
  Sex: Female
  Weight: 72 kg

DRUGS (13)
  1. AMLODIPINE BESYLATE [Concomitant]
     Indication: HYPERTENSION
     Route: 048
     Dates: start: 20100212
  2. CLOPIDOGREL BISULFATE [Concomitant]
     Indication: ARTERIAL DISORDER
     Route: 048
     Dates: start: 20100212
  3. GLIMEPIRIDE [Concomitant]
     Indication: TYPE 2 DIABETES MELLITUS
     Route: 048
     Dates: start: 20101003, end: 20110108
  4. PAROXETINE HYDROCHLORIDE [Concomitant]
     Indication: DEPRESSION
     Route: 048
     Dates: start: 20100212
  5. METOPROLOL TARTRATE [Concomitant]
     Indication: HYPERTENSION
     Route: 048
     Dates: start: 20100212
  6. RILMENIDINE PHOSPHATE [Concomitant]
     Indication: HYPERTENSION
     Route: 048
     Dates: start: 20100212
  7. PRAVASTATIN SODIUM [Concomitant]
     Indication: HYPERCHOLESTEROLAEMIA
     Route: 048
     Dates: start: 20100212
  8. OXAZEPAM [Concomitant]
     Indication: ANXIETY
     Route: 048
     Dates: start: 20100212
  9. RAMIPRIL [Concomitant]
     Indication: HYPERTENSION
     Route: 048
     Dates: start: 20100212
  10. JANUMET [Suspect]
     Indication: TYPE 2 DIABETES MELLITUS
     Route: 048
     Dates: start: 20100414, end: 20120104
  11. GLICLAZIDE [Suspect]
     Route: 048
     Dates: start: 20100414, end: 20101003
  12. GLICLAZIDE [Suspect]
     Indication: TYPE 2 DIABETES MELLITUS
     Route: 048
     Dates: end: 20100413
  13. GLICLAZIDE [Suspect]
     Route: 048
     Dates: start: 20110108, end: 20120101

REACTIONS (3)
  - PRURITUS [None]
  - FAILURE TO THRIVE [None]
  - HYPOGLYCAEMIA [None]
